FAERS Safety Report 14912889 (Version 3)
Quarter: 2025Q4

REPORT INFORMATION
  Report Type: Report from Study
  Country: EU (occurrence: EU)
  Receive Date: 20180518
  Receipt Date: 20251030
  Transmission Date: 20260117
  Serious: Yes (Hospitalization, Other)
  Sender: AUROBINDO
  Company Number: EU-MLMSERVICE-20170829-0859561-17

PATIENT
  Age: 77 Year

DRUGS (1)
  1. METFORMIN [Suspect]
     Active Substance: METFORMIN HYDROCHLORIDE
     Indication: Product used for unknown indication
     Dosage: UNK
     Route: 048

REACTIONS (16)
  - Lactic acidosis [Unknown]
  - Anion gap increased [Unknown]
  - Blood magnesium decreased [Unknown]
  - Blood bicarbonate decreased [Unknown]
  - Base excess decreased [Unknown]
  - Hypocapnia [Unknown]
  - Blood chloride decreased [Unknown]
  - Blood pH decreased [Unknown]
  - Blood phosphorus increased [Unknown]
  - Hypovolaemia [Unknown]
  - PO2 increased [Unknown]
  - Acute kidney injury [Unknown]
  - Creatinine renal clearance decreased [Unknown]
  - Blood creatinine increased [Unknown]
  - Gastrointestinal disorder [Unknown]
  - Toxicity to various agents [Unknown]

NARRATIVE: CASE EVENT DATE: 20120101
